FAERS Safety Report 8249062-4 (Version None)
Quarter: 2012Q1

REPORT INFORMATION
  Report Type: 
  Country: None (occurrence: None)
  Receive Date: 20120327
  Receipt Date: 20120313
  Transmission Date: 20120608
  Serious: Yes (Hospitalization)
  Sender: FDA-Public Use
  Company Number: B0787999A

PATIENT
  Sex: Female

DRUGS (7)
  1. FUROSEMIDE [Concomitant]
  2. SPIRAMYCIN [Concomitant]
  3. CIPROFLOXACIN [Suspect]
     Indication: LUNG INFECTION PSEUDOMONAL
     Dosage: 250 MGDAY/TWICE PER DAY/ ORAL
     Route: 048
     Dates: start: 20120125, end: 20120208
  4. CEFTRIAXONE [Concomitant]
  5. AMOXICILLIN TRIHYDRATE [Concomitant]
  6. AMLODIPINE BESYLATE [Concomitant]
  7. CEFTAZIDIME SODIUM [Suspect]
     Indication: PSEUDOMONAS INFECTION
     Dosage: 1 GRAM(S)THREE TIMES PER DAY / INTRA
     Route: 042
     Dates: start: 20120125, end: 20120208

REACTIONS (4)
  - CONDITION AGGRAVATED [None]
  - ENCEPHALOPATHY [None]
  - RENAL FAILURE [None]
  - ANTIBIOTIC LEVEL ABOVE THERAPEUTIC [None]
